FAERS Safety Report 11844365 (Version 3)
Quarter: 2016Q2

REPORT INFORMATION
  Report Type: Spontaneous
  Country: US (occurrence: US)
  Receive Date: 20151217
  Receipt Date: 20160614
  Transmission Date: 20160815
  Serious: Yes (Life-Threatening, Hospitalization)
  Sender: FDA-Public Use
  Company Number: US-BAYER-2015-490277

PATIENT
  Age: 22 Year
  Sex: Female
  Weight: 85.71 kg

DRUGS (4)
  1. ZOFRAN [Concomitant]
     Active Substance: ONDANSETRON HYDROCHLORIDE
  2. NUBAIN [Concomitant]
     Active Substance: NALBUPHINE HYDROCHLORIDE
  3. MIRENA [Suspect]
     Active Substance: LEVONORGESTREL
     Indication: CONTRACEPTION
     Dosage: 20 MCG/24HR, CONT
     Route: 015
     Dates: start: 20091223, end: 20100607
  4. CIPRO [Concomitant]
     Active Substance: CIPROFLOXACIN HYDROCHLORIDE
     Indication: MICTURITION DISORDER

REACTIONS (8)
  - Genital haemorrhage [None]
  - Pelvic pain [None]
  - Dizziness [None]
  - Abdominal pain lower [None]
  - Scar [None]
  - Back pain [None]
  - Uterine perforation [None]
  - Urinary tract infection [None]

NARRATIVE: CASE EVENT DATE: 2010
